FAERS Safety Report 21760524 (Version 2)
Quarter: 2023Q1

REPORT INFORMATION
  Report Type: Spontaneous
  Country: JP (occurrence: JP)
  Receive Date: 20221221
  Receipt Date: 20230119
  Transmission Date: 20230418
  Serious: Yes (Hospitalization, Other)
  Sender: FDA-Public Use
  Company Number: JP-VIATRISJAPAN-2022M1140416AA

PATIENT
  Age: 82 Year
  Sex: Female

DRUGS (1)
  1. PREGABALIN [Suspect]
     Active Substance: PREGABALIN
     Indication: Analgesic therapy
     Dosage: UNK
     Route: 048

REACTIONS (1)
  - Coombs positive haemolytic anaemia [Recovered/Resolved]
